FAERS Safety Report 10795006 (Version 1)
Quarter: 2015Q1

REPORT INFORMATION
  Report Type: Spontaneous
  Country: US (occurrence: US)
  Receive Date: 20150214
  Receipt Date: 20150214
  Transmission Date: 20150721
  Serious: No
  Sender: FDA-Public Use
  Company Number: US-GLAXOSMITHKLINE-A1084035A

PATIENT

DRUGS (5)
  1. ENALAPRIL [Concomitant]
     Active Substance: ENALAPRIL
  2. NATURAL DESSICATED THYROID [Concomitant]
  3. OXYGEN. [Concomitant]
     Active Substance: OXYGEN
  4. VENTOLIN [Suspect]
     Active Substance: ALBUTEROL SULFATE
     Indication: UPPER RESPIRATORY TRACT INFECTION
     Route: 055
     Dates: start: 201405
  5. ENBREL [Concomitant]
     Active Substance: ETANERCEPT

REACTIONS (3)
  - Middle insomnia [Unknown]
  - Upper respiratory tract infection [Unknown]
  - Oxygen saturation decreased [Not Recovered/Not Resolved]

NARRATIVE: CASE EVENT DATE: 201405
